FAERS Safety Report 5968762-X (Version None)
Quarter: 2008Q4

REPORT INFORMATION
  Report Type: 
  Country: None (occurrence: None)
  Receive Date: 20081125
  Receipt Date: 20081125
  Transmission Date: 20090506
  Serious: Yes (Other)
  Sender: FDA-Public Use
  Company Number: None

PATIENT
  Age: 51 Year
  Sex: Male
  Weight: 119.5 kg

DRUGS (2)
  1. CETUXIMAB - BRISTOL MYERS SQUIBB [Suspect]
     Indication: COLORECTAL CANCER
     Dosage: 976 MG, Q2W, IV
     Route: 042
  2. IRINOTECAN - UNKNOWN MANUFACTURER [Suspect]
     Indication: COLORECTAL CANCER
     Dosage: 329 MG, Q2W, IV
     Route: 042

REACTIONS (4)
  - CHEST DISCOMFORT [None]
  - COUGH [None]
  - DYSPNOEA [None]
  - INFUSION RELATED REACTION [None]
